FAERS Safety Report 15410914 (Version 2)
Quarter: 2019Q2

REPORT INFORMATION
  Report Type: Spontaneous
  Country: ES (occurrence: ES)
  Receive Date: 20180921
  Receipt Date: 20190604
  Transmission Date: 20190711
  Serious: Yes (Hospitalization)
  Sender: FDA-Public Use
  Company Number: ES-SUN PHARMACEUTICAL INDUSTRIES LTD-2018RR-185059

PATIENT
  Age: 41 Year
  Sex: Female
  Weight: 60.8 kg

DRUGS (4)
  1. OXALIPLATIN. [Suspect]
     Active Substance: OXALIPLATIN
     Indication: BREAST CANCER
     Dosage: 85 MG POR METRO CUADRADO ()
     Route: 042
     Dates: start: 20131108
  2. BEVACIZUMAB (2952A) [Suspect]
     Active Substance: BEVACIZUMAB
     Indication: BREAST CANCER
     Dosage: 5 MG POR KG ()
     Route: 042
     Dates: start: 20131108
  3. FOLINICO ACIDO (1587A) [Concomitant]
     Active Substance: LEUCOVORIN
     Indication: BREAST CANCER
     Dosage: 400 MG POR METRO CUADRADO ()
     Route: 042
     Dates: start: 20131108
  4. FLUOROURACILO (272A) [Suspect]
     Active Substance: FLUOROURACIL
     Indication: BREAST CANCER
     Dosage: 2400 MG POR METRO CUADRADO ()
     Route: 042
     Dates: start: 20131108

REACTIONS (2)
  - Pyrexia [Recovered/Resolved]
  - Bacteraemia [Recovered/Resolved]

NARRATIVE: CASE EVENT DATE: 20131212
